FAERS Safety Report 6287451-8 (Version None)
Quarter: 2009Q3

REPORT INFORMATION
  Report Type: 
  Country: None (occurrence: None)
  Receive Date: 20090728
  Receipt Date: 20090720
  Transmission Date: 20100115
  Serious: Yes (Other)
  Sender: FDA-Public Use
  Company Number: FR-B.I. PHARMACEUTICALS,INC./RIDGEFIELD-2009-DE-04985GD

PATIENT
  Age: 42 Year
  Sex: Male
  Weight: 64 kg

DRUGS (5)
  1. NEVIRAPINE [Suspect]
     Indication: HIV INFECTION
  2. RITONAVIR [Suspect]
     Indication: HIV INFECTION
  3. INDINIVIR SULFATE [Suspect]
     Indication: HIV INFECTION
  4. LAMIVUDINE [Suspect]
     Indication: HIV INFECTION
  5. ZIDOVUDINE [Suspect]
     Indication: HIV INFECTION

REACTIONS (3)
  - HYPERLIPIDAEMIA [None]
  - INSULIN RESISTANCE [None]
  - LIPODYSTROPHY ACQUIRED [None]
